FAERS Safety Report 4268031-2 (Version None)
Quarter: 2004Q1

REPORT INFORMATION
  Report Type: 
  Country: None (occurrence: None)
  Receive Date: 20040109
  Receipt Date: 20040106
  Transmission Date: 20041129
  Serious: Yes (Death, Life-Threatening)
  Sender: FDA-Public Use
  Company Number: GB-BRISTOL-MYERS SQUIBB COMPANY-12472429

PATIENT
  Age: 79 Year
  Sex: Male

DRUGS (8)
  1. TRAZODONE HCL [Suspect]
     Route: 048
  2. OLANZAPINE [Suspect]
     Indication: DEMENTIA
     Route: 048
     Dates: end: 20031110
  3. ACETAMINOPHEN [Concomitant]
     Route: 048
  4. ISOSORBIDE MONONITRATE [Concomitant]
     Route: 048
  5. SIMVASTATIN [Concomitant]
     Indication: HYPERCHOLESTEROLAEMIA
     Route: 048
  6. BRICANYL [Concomitant]
     Indication: CHRONIC OBSTRUCTIVE AIRWAYS DISEASE
     Route: 055
  7. INFLUENZA VIRUS VACCINE [Concomitant]
     Dates: start: 20031104, end: 20031104
  8. PERINDOPRIL [Concomitant]
     Route: 048

REACTIONS (1)
  - LEUKOPENIA [None]
